FAERS Safety Report 10792543 (Version 1)
Quarter: 2015Q1

REPORT INFORMATION
  Report Type: Spontaneous
  Country: CH (occurrence: CH)
  Receive Date: 20150213
  Receipt Date: 20150213
  Transmission Date: 20150721
  Serious: Yes (Hospitalization)
  Sender: FDA-Public Use
  Company Number: CH-TEVA-540333ISR

PATIENT
  Age: 73 Year
  Sex: Female

DRUGS (2)
  1. TERBINAFIN-MEPHA [Suspect]
     Active Substance: TERBINAFINE HYDROCHLORIDE
     Indication: ONYCHOMYCOSIS
     Dosage: 250 MILLIGRAM DAILY;
     Route: 048
     Dates: start: 20140912, end: 201410
  2. TERBINAFIN-MEPHA [Suspect]
     Active Substance: TERBINAFINE HYDROCHLORIDE
     Route: 048
     Dates: start: 201410, end: 20141031

REACTIONS (4)
  - Dysgeusia [Recovering/Resolving]
  - Dyspepsia [Not Recovered/Not Resolved]
  - Weight decreased [Not Recovered/Not Resolved]
  - Gastrooesophageal reflux disease [Not Recovered/Not Resolved]

NARRATIVE: CASE EVENT DATE: 20140913
